FAERS Safety Report 17117343 (Version 1)
Quarter: 2019Q4

REPORT INFORMATION
  Report Type: Report from Study
  Country: US (occurrence: US)
  Receive Date: 20191205
  Receipt Date: 20191205
  Transmission Date: 20200122
  Serious: Yes (Hospitalization)
  Sender: FDA-Public Use
  Company Number: US-TAIHO ONCOLOGY  INC-EU-2019-04016

PATIENT
  Age: 59 Year
  Sex: Male

DRUGS (22)
  1. LONSURF [Suspect]
     Active Substance: TIPIRACIL HYDROCHLORIDE\TRIFLURIDINE
     Indication: CHRONIC LYMPHOCYTIC LEUKAEMIA
     Dosage: CURRENT CYCLE 4 INTERRUPTED ON 23/NOV/2019
     Route: 048
  2. HYDROCODONE-ACETAMINOPHEN [Concomitant]
     Active Substance: ACETAMINOPHEN\HYDROCODONE
     Dosage: NI
  3. FARXIGA [Concomitant]
     Active Substance: DAPAGLIFLOZIN PROPANEDIOL
     Dosage: NI
  4. DULOXETINE HCL [Concomitant]
     Active Substance: DULOXETINE HYDROCHLORIDE
     Dosage: NI
  5. AMARYL [Concomitant]
     Active Substance: GLIMEPIRIDE
     Dosage: NI
  6. FERROUS SULFATE. [Concomitant]
     Active Substance: FERROUS SULFATE
     Dosage: NI
  7. PROCHLORPERAZINE. [Concomitant]
     Active Substance: PROCHLORPERAZINE
     Dosage: NI
  8. ABILIFY [Concomitant]
     Active Substance: ARIPIPRAZOLE
     Dosage: NI
  9. TOUJEO [Concomitant]
     Active Substance: INSULIN GLARGINE
     Dosage: NI
  10. MORPHINE SULFATE. [Concomitant]
     Active Substance: MORPHINE SULFATE
     Dosage: NI
  11. METOPROLOL SUCCINATE. [Concomitant]
     Active Substance: METOPROLOL SUCCINATE
     Dosage: NI
  12. LISINOPRIL. [Concomitant]
     Active Substance: LISINOPRIL
     Dosage: NI
  13. GABAPENTIN. [Concomitant]
     Active Substance: GABAPENTIN
     Dosage: NI
  14. CLORAZEPATE [Concomitant]
     Active Substance: CLORAZEPATE DIPOTASSIUM
     Dosage: NI
  15. ASPIRIN EC [Concomitant]
     Active Substance: ASPIRIN
     Dosage: NI
  16. METFORMIN HCL [Concomitant]
     Active Substance: METFORMIN HYDROCHLORIDE
     Dosage: NI
  17. LIPITOR [Concomitant]
     Active Substance: ATORVASTATIN CALCIUM
     Dosage: NI
  18. LANTUS [Concomitant]
     Active Substance: INSULIN GLARGINE
     Dosage: NI
  19. CHLORTHALIDONE. [Concomitant]
     Active Substance: CHLORTHALIDONE
     Dosage: NI
  20. ONDANSETRON HCL [Concomitant]
     Active Substance: ONDANSETRON HYDROCHLORIDE
     Dosage: NI
  21. PLAVIX [Concomitant]
     Active Substance: CLOPIDOGREL BISULFATE
     Dosage: NI
  22. AQUAPHOR [Concomitant]
     Active Substance: PETROLATUM
     Dosage: NI

REACTIONS (2)
  - Cardiac valve thickening [Recovered/Resolved]
  - Intentional product use issue [Unknown]

NARRATIVE: CASE EVENT DATE: 20191123
